FAERS Safety Report 9491641 (Version 2)
Quarter: 2013Q1

REPORT INFORMATION
  Report Type: Not Available
  Country: US (occurrence: US)
  Receive Date: 20121219
  Receipt Date: 20121219
  Transmission Date: 20140127
  Serious: No
  Sender: FDA-Public Use
  Company Number: US-LUNDBECK-DKLU1084534

PATIENT
  Sex: Female

DRUGS (8)
  1. ONFI [Suspect]
     Indication: EPILEPSY
     Route: 048
     Dates: start: 20120621
  2. ONFI [Suspect]
     Route: 048
     Dates: start: 20120621
  3. ONFI [Suspect]
     Route: 048
  4. ONFI [Suspect]
     Route: 048
  5. ONFI [Suspect]
     Route: 048
  6. ZONEGRAN [Concomitant]
     Indication: PRODUCT USED FOR UNKNOWN INDICATION
  7. LYRICA [Concomitant]
     Indication: PRODUCT USED FOR UNKNOWN INDICATION
  8. KEPPRA [Concomitant]
     Indication: PRODUCT USED FOR UNKNOWN INDICATION

REACTIONS (10)
  - Chills [Unknown]
  - Abnormal behaviour [Unknown]
  - Oedema peripheral [Unknown]
  - Flatulence [Unknown]
  - Mood altered [Unknown]
  - Feeling abnormal [Unknown]
  - Headache [Unknown]
  - Amnesia [Unknown]
  - Hallucination [Recovering/Resolving]
  - Constipation [Unknown]
